FAERS Safety Report 8222066-3 (Version None)
Quarter: 2012Q1

REPORT INFORMATION
  Report Type: 
  Country: None (occurrence: None)
  Receive Date: 20120314
  Receipt Date: 20120301
  Transmission Date: 20120608
  Serious: Yes (Other)
  Sender: FDA-Public Use
  Company Number: DSA_55278_2012

PATIENT
  Sex: Female
  Weight: 58.9676 kg

DRUGS (9)
  1. SYNTHROID [Concomitant]
  2. BUPROPION HCL [Suspect]
     Indication: DEPRESSION
     Dosage: (200 MG QD ORAL), (ONE HALF TABLET ONE TIME ORAL)
     Route: 048
     Dates: start: 20100101, end: 20100101
  3. BUPROPION HCL [Suspect]
     Indication: DEPRESSION
     Dosage: (200 MG QD ORAL), (ONE HALF TABLET ONE TIME ORAL)
     Route: 048
     Dates: start: 19980101, end: 19980101
  4. VITAMIN D [Concomitant]
  5. MULTI-VITAMINS [Concomitant]
  6. WELLBUTRIN [Suspect]
     Indication: DEPRESSION
     Dosage: (300 MG QD ORAL), (DF ORAL)
     Route: 048
     Dates: start: 20110101, end: 20110701
  7. WELLBUTRIN [Suspect]
     Indication: DEPRESSION
     Dosage: (300 MG QD ORAL), (DF ORAL)
     Route: 048
     Dates: start: 20070101
  8. WELLBUTRIN SR [Suspect]
     Indication: DEPRESSION
     Dosage: (200 MG QD)
     Dates: start: 20110701
  9. LOVAZA [Concomitant]

REACTIONS (8)
  - DYSKINESIA [None]
  - AGITATION [None]
  - ANGER [None]
  - WRONG TECHNIQUE IN DRUG USAGE PROCESS [None]
  - FLASHBACK [None]
  - ANAPHYLACTIC REACTION [None]
  - DRUG INEFFECTIVE [None]
  - BRUXISM [None]
